FAERS Safety Report 7626430-2 (Version None)
Quarter: 2011Q3

REPORT INFORMATION
  Report Type: 
  Country: None (occurrence: None)
  Receive Date: 20110714
  Receipt Date: 20110629
  Transmission Date: 20111222
  Serious: Yes (Hospitalization)
  Sender: FDA-Public Use
  Company Number: TPA2009A03537

PATIENT
  Age: 65 Year
  Sex: Female
  Weight: 63.5036 kg

DRUGS (3)
  1. MILK OF MAGNESIA TAB [Concomitant]
  2. COUMADIN [Suspect]
     Indication: THROMBOSIS PROPHYLAXIS
  3. ACTOS [Suspect]
     Indication: DIABETES MELLITUS

REACTIONS (10)
  - UNEVALUABLE EVENT [None]
  - CARDIAC FAILURE CONGESTIVE [None]
  - TOOTH DISORDER [None]
  - TOOTH FRACTURE [None]
  - TOOTH LOSS [None]
  - DIZZINESS [None]
  - DYSURIA [None]
  - CONSTIPATION [None]
  - PALPITATIONS [None]
  - ABDOMINAL DISTENSION [None]
